FAERS Safety Report 8758614 (Version 1)
Quarter: 2012Q4

REPORT INFORMATION
  Report Type: 
  Country: BR (occurrence: BR)
  Receive Date: 20120829
  Receipt Date: 20120829
  Transmission Date: 20130627
  Serious: Yes (Other)
  Sender: FDA-Public Use
  Company Number: PHHY2012BR074207

PATIENT
  Sex: Female

DRUGS (1)
  1. FORASEQ [Suspect]
     Indication: DYSPNOEA
     Dosage: 1 DF, QD
     Dates: start: 2008

REACTIONS (4)
  - Allergic bronchitis [Recovering/Resolving]
  - Blood cholesterol increased [Not Recovered/Not Resolved]
  - Influenza [Recovering/Resolving]
  - Hypertension [Unknown]
